FAERS Safety Report 5190786-3 (Version None)
Quarter: 2006Q4

REPORT INFORMATION
  Report Type: 
  Country: None (occurrence: None)
  Receive Date: 20061222
  Receipt Date: 20061010
  Transmission Date: 20070319
  Serious: Yes (Death, Other)
  Sender: FDA-Public Use
  Company Number: US-ELI_LILLY_AND_COMPANY-US200610001800

PATIENT
  Sex: Female

DRUGS (1)
  1. FORTEO [Suspect]
     Indication: OSTEOPOROSIS

REACTIONS (4)
  - DEATH [None]
  - LUNG NEOPLASM MALIGNANT [None]
  - PULMONARY FUNCTION TEST DECREASED [None]
  - STAPHYLOCOCCAL INFECTION [None]
